FAERS Safety Report 11803817 (Version 1)
Quarter: 2015Q4

REPORT INFORMATION
  Report Type: Spontaneous
  Country: FR (occurrence: FR)
  Receive Date: 20151204
  Receipt Date: 20151204
  Transmission Date: 20160305
  Serious: Yes (Death, Other)
  Sender: FDA-Public Use
  Company Number: FR-BAXALTA-2015BLT002975

PATIENT
  Sex: Male

DRUGS (1)
  1. FEIBA [Suspect]
     Active Substance: ANTI-INHIBITOR COAGULANT COMPLEX
     Indication: HAEMATOMA
     Route: 065

REACTIONS (4)
  - Cardiac failure [Fatal]
  - Respiratory distress [Fatal]
  - Infection [Fatal]
  - General physical health deterioration [Unknown]
